FAERS Safety Report 8164304-1 (Version None)
Quarter: 2012Q1

REPORT INFORMATION
  Report Type: 
  Country: None (occurrence: None)
  Receive Date: 20120224
  Receipt Date: 20110707
  Transmission Date: 20120608
  Serious: No
  Sender: FDA-Public Use
  Company Number: US-MYLANLABS-2011S1012023

PATIENT
  Age: 67 Year
  Sex: Female

DRUGS (3)
  1. ATENOLOL [Suspect]
     Indication: HEART VALVE INCOMPETENCE
     Dates: start: 20110301
  2. CALCIUM CITRATE [Concomitant]
  3. MULTI-VITAMIN [Concomitant]

REACTIONS (3)
  - DRY SKIN [None]
  - MUCOUS MEMBRANE DISORDER [None]
  - NASAL DRYNESS [None]
